FAERS Safety Report 24652793 (Version 2)
Quarter: 2024Q4

REPORT INFORMATION
  Report Type: Spontaneous
  Country: US (occurrence: US)
  Receive Date: 20241122
  Receipt Date: 20241209
  Transmission Date: 20250114
  Serious: No
  Sender: ROCHE
  Company Number: US-ROCHE-10000137997

PATIENT
  Age: 12 Year
  Sex: Male

DRUGS (1)
  1. HEMLIBRA [Suspect]
     Active Substance: EMICIZUMAB-KXWH
     Indication: Factor VIII deficiency
     Dosage: STRENGTH: 150 MG/ML?STRENGTH: 60 MG/ 0.4 ML
     Route: 058
     Dates: start: 202201

REACTIONS (2)
  - Epistaxis [Unknown]
  - Seizure [Unknown]

NARRATIVE: CASE EVENT DATE: 20240331
